FAERS Safety Report 20006415 (Version 1)
Quarter: 2021Q4

REPORT INFORMATION
  Report Type: Spontaneous
  Country: US (occurrence: US)
  Receive Date: 20211028
  Receipt Date: 20211028
  Transmission Date: 20220303
  Serious: Yes (Hospitalization)
  Sender: FDA-Public Use
  Company Number: None

PATIENT
  Sex: Female

DRUGS (7)
  1. DALFAMPRIDINE [Suspect]
     Active Substance: DALFAMPRIDINE
     Route: 048
  2. BACLOFEN [Concomitant]
     Active Substance: BACLOFEN
  3. FLUOXETINE [Concomitant]
     Active Substance: FLUOXETINE HYDROCHLORIDE
  4. GABAPENTIN [Concomitant]
     Active Substance: GABAPENTIN
  5. ROPINIROLE [Concomitant]
     Active Substance: ROPINIROLE
  6. SIMVASTATIN [Concomitant]
     Active Substance: SIMVASTATIN
  7. TROSPIUM [Concomitant]
     Active Substance: TROSPIUM

REACTIONS (5)
  - Therapy non-responder [None]
  - Therapy interrupted [None]
  - Dysstasia [None]
  - Movement disorder [None]
  - Ankle fracture [None]
